FAERS Safety Report 6141351-2 (Version None)
Quarter: 2009Q2

REPORT INFORMATION
  Report Type: 
  Country: None (occurrence: None)
  Receive Date: 20090402
  Receipt Date: 20090324
  Transmission Date: 20091009
  Serious: Yes (Life-Threatening)
  Sender: FDA-Public Use
  Company Number: FR-ROCHE-623826

PATIENT
  Sex: Male

DRUGS (1)
  1. APRANAX [Suspect]
     Indication: DRUG USE FOR UNKNOWN INDICATION
     Dosage: FREQUENCY : ONCE
     Route: 048
     Dates: start: 20090307, end: 20090307

REACTIONS (2)
  - ANGIOEDEMA [None]
  - URTICARIA [None]
